FAERS Safety Report 23404100 (Version 1)
Quarter: 2024Q1

REPORT INFORMATION
  Report Type: Spontaneous
  Country: DE (occurrence: DE)
  Receive Date: 20240116
  Receipt Date: 20240116
  Transmission Date: 20240409
  Serious: Yes (Death)
  Sender: FDA-Public Use
  Company Number: DE-GERMAN-LIT/DEU/24/0000576

PATIENT
  Age: 69 Year
  Sex: Male

DRUGS (9)
  1. AZACITIDINE [Suspect]
     Active Substance: AZACITIDINE
     Indication: Acute myeloid leukaemia
     Dates: start: 202109
  2. OXALIPLATIN [Suspect]
     Active Substance: OXALIPLATIN
     Indication: Cholangiocarcinoma
     Dosage: CYCLICAL FOLFOX REGIMEN EVERY 2 WEEKS; INCLUDING OXALIPLATIN 100 MG/M2, FOLIC ACID 400 MG/M2 AND FLU
     Dates: start: 201907, end: 202002
  3. FLUOROURACIL [Suspect]
     Active Substance: FLUOROURACIL
     Indication: Cholangiocarcinoma
     Dosage: CYCLICAL FOLFOX REGIMEN EVERY 2 WEEKS; INCLUDING OXALIPLATIN 100 MG/M2, FOLIC ACID 400 MG/M2 AND FLU
     Dates: start: 201907, end: 202002
  4. FLUOROURACIL [Suspect]
     Active Substance: FLUOROURACIL
     Dosage: CYCLICAL FOLFIRI REGIMEN EVERY 2 WEEKS INCLUDING IRINOTECAN 180 MG/M2, FOLIC ACID 400 MG/M2 AND FLUO
     Dates: start: 202002
  5. IRINOTECAN [Suspect]
     Active Substance: IRINOTECAN
     Indication: Cholangiocarcinoma
     Dosage: CYCLICAL FOLFIRI REGIMEN EVERY 2 WEEKS INCLUDING IRINOTECAN 180 MG/M2, FOLIC ACID 400 MG/M2 AND FLUO
     Dates: start: 202002
  6. PEMIGATINIB [Suspect]
     Active Substance: PEMIGATINIB
     Indication: Cholangiocarcinoma
     Dates: start: 202005
  7. PEMIGATINIB [Suspect]
     Active Substance: PEMIGATINIB
  8. FOLIC ACID [Concomitant]
     Active Substance: FOLIC ACID
     Dosage: CYCLICAL FOLFOX REGIMEN EVERY 2 WEEKS; INCLUDING OXALIPLATIN 100 MG/M2, FOLIC ACID 400 MG/M2 AND FLU
     Dates: start: 201907, end: 202002
  9. FOLIC ACID [Concomitant]
     Active Substance: FOLIC ACID
     Dosage: CYCLICAL FOLFIRI REGIMEN EVERY 2 WEEKS INCLUDING IRINOTECAN 180 MG/M2, FOLIC ACID 400 MG/M2 AND FLUO
     Dates: start: 202002

REACTIONS (4)
  - Acute myeloid leukaemia [Fatal]
  - Disease progression [Fatal]
  - Pneumonia [Fatal]
  - Treatment failure [Unknown]
